FAERS Safety Report 7471058-0 (Version None)
Quarter: 2011Q2

REPORT INFORMATION
  Report Type: 
  Country: None (occurrence: None)
  Receive Date: 20110510
  Receipt Date: 20110506
  Transmission Date: 20111010
  Serious: Yes (Other)
  Sender: FDA-Public Use
  Company Number: GB-PFIZER INC-2011061059

PATIENT
  Age: 41 Year
  Sex: Female

DRUGS (1)
  1. VARENICLINE TARTRATE [Suspect]
     Indication: SMOKING CESSATION THERAPY
     Dosage: UNK
     Dates: start: 20110305, end: 20110301

REACTIONS (3)
  - DEPRESSED MOOD [None]
  - BLOOD PRESSURE INCREASED [None]
  - FEELING ABNORMAL [None]
